FAERS Safety Report 12118626 (Version 4)
Quarter: 2018Q1

REPORT INFORMATION
  Report Type: Report from Study
  Country: DE (occurrence: DE)
  Receive Date: 20160226
  Receipt Date: 20180307
  Transmission Date: 20180508
  Serious: Yes (Hospitalization)
  Sender: FDA-Public Use
  Company Number: DE-ROCHE-1715559

PATIENT
  Age: 62 Year
  Sex: Female
  Weight: 85 kg

DRUGS (6)
  1. CAPECITABINE. [Suspect]
     Active Substance: CAPECITABINE
     Dosage: 14 DAYS CYCLE FOLLOWED BY 7 DAYS PAUSE
     Route: 048
     Dates: start: 20160208
  2. BEVACIZUMAB. [Suspect]
     Active Substance: BEVACIZUMAB
     Indication: BREAST CANCER
     Route: 042
     Dates: start: 20151123, end: 20160104
  3. CAPECITABINE. [Suspect]
     Active Substance: CAPECITABINE
     Dosage: 14 DAYS CYCLE FOLLOWED BY 7 DAYS PAUSE
     Route: 048
     Dates: start: 20151214
  4. CAPECITABINE. [Suspect]
     Active Substance: CAPECITABINE
     Indication: BREAST CANCER
     Dosage: 14 DAYS CYCLE FOLLOWED BY 7 DAYS PAUSE
     Route: 048
     Dates: start: 20151123, end: 20160208
  5. CAPECITABINE. [Suspect]
     Active Substance: CAPECITABINE
     Dosage: 14 DAYS CYCLE FOLLOWED BY 7 DAYS PAUSE
     Route: 048
     Dates: start: 20160104
  6. CANDESARTAN. [Concomitant]
     Active Substance: CANDESARTAN
     Route: 048
     Dates: start: 20151217

REACTIONS (3)
  - Paraneoplastic syndrome [Recovering/Resolving]
  - Speech disorder [Recovered/Resolved]
  - Venous thrombosis limb [Recovering/Resolving]

NARRATIVE: CASE EVENT DATE: 20160125
